FAERS Safety Report 19691878 (Version 1)
Quarter: 2021Q3

REPORT INFORMATION
  Report Type: Spontaneous
  Country: CN (occurrence: CN)
  Receive Date: 20210812
  Receipt Date: 20210812
  Transmission Date: 20211014
  Serious: Yes (Other)
  Sender: FDA-Public Use
  Company Number: CN-PFIZER INC-202100993746

PATIENT
  Age: 73 Year
  Sex: Female
  Weight: 52.5 kg

DRUGS (1)
  1. LIPITOR [Suspect]
     Active Substance: ATORVASTATIN CALCIUM
     Indication: PLAQUE SHIFT
     Dosage: 20 MG, 1X/DAY
     Route: 048
     Dates: start: 20210724, end: 20210728

REACTIONS (3)
  - Pruritus [Recovering/Resolving]
  - Rash erythematous [Recovering/Resolving]
  - Drug eruption [Recovering/Resolving]

NARRATIVE: CASE EVENT DATE: 20210725
